FAERS Safety Report 25701005 (Version 1)
Quarter: 2025Q3

REPORT INFORMATION
  Report Type: Spontaneous
  Country: US (occurrence: US)
  Receive Date: 20250819
  Receipt Date: 20250819
  Transmission Date: 20251021
  Serious: No
  Sender: SANOFI AVENTIS
  Company Number: US-SA-2025SA246100

PATIENT
  Age: 33 Year
  Sex: Female

DRUGS (1)
  1. DUPIXENT [Suspect]
     Active Substance: DUPILUMAB
     Indication: Dermatitis atopic
     Dosage: 300 MG, QOW
     Route: 058

REACTIONS (7)
  - Abdominal pain upper [Unknown]
  - Pruritus [Unknown]
  - Toothache [Unknown]
  - Injection site erythema [Unknown]
  - Injection site swelling [Unknown]
  - Dry eye [Unknown]
  - Eczema [Unknown]
